FAERS Safety Report 14111638 (Version 2)
Quarter: 2017Q4

REPORT INFORMATION
  Report Type: Report from Study
  Country: None (occurrence: ZA)
  Receive Date: 20171020
  Receipt Date: 20171031
  Transmission Date: 20180321
  Serious: Yes (Hospitalization)
  Sender: FDA-Public Use
  Company Number: ZA-ABBVIE-17K-143-2132364-00

PATIENT
  Sex: Female
  Weight: 93 kg

DRUGS (1)
  1. HUMIRA [Suspect]
     Active Substance: ADALIMUMAB
     Indication: RHEUMATOID ARTHRITIS
     Route: 058

REACTIONS (5)
  - Nausea [Unknown]
  - Swelling face [Unknown]
  - Swollen tongue [Unknown]
  - Hypotension [Unknown]
  - Gastrointestinal viral infection [Not Recovered/Not Resolved]
